FAERS Safety Report 18810888 (Version 1)
Quarter: 2021Q1

REPORT INFORMATION
  Report Type: Spontaneous
  Country: PT (occurrence: PT)
  Receive Date: 20210129
  Receipt Date: 20210129
  Transmission Date: 20210419
  Serious: Yes (Other)
  Sender: FDA-Public Use
  Company Number: PT-ELI_LILLY_AND_COMPANY-PT202101008780

PATIENT
  Age: 62 Year
  Sex: Male

DRUGS (16)
  1. PEMETREXED. [Suspect]
     Active Substance: PEMETREXED
     Dosage: MAINTENANCE
     Route: 065
     Dates: start: 20201228
  2. PEMBROLIZUMAB. [Suspect]
     Active Substance: PEMBROLIZUMAB
     Dosage: BASELINE
     Route: 065
     Dates: start: 20201112
  3. CARBOPLATIN. [Suspect]
     Active Substance: CARBOPLATIN
     Indication: LUNG ADENOCARCINOMA
     Dosage: BASELINE
     Route: 065
     Dates: start: 20200909
  4. PEMETREXED. [Suspect]
     Active Substance: PEMETREXED
     Dosage: MAINTENANCE
     Route: 065
     Dates: start: 20201203
  5. PEMBROLIZUMAB. [Suspect]
     Active Substance: PEMBROLIZUMAB
     Dosage: MAINTENANCE
     Route: 065
     Dates: start: 20201203
  6. CARBOPLATIN. [Suspect]
     Active Substance: CARBOPLATIN
     Dosage: BASELINE
     Route: 065
     Dates: start: 20201022
  7. PEMETREXED. [Suspect]
     Active Substance: PEMETREXED
     Dosage: BASELINE
     Route: 065
     Dates: start: 20201022
  8. PEMBROLIZUMAB. [Suspect]
     Active Substance: PEMBROLIZUMAB
     Indication: PRODUCT USED FOR UNKNOWN INDICATION
     Dosage: BASELINE
     Dates: start: 20200909
  9. CARBOPLATIN. [Suspect]
     Active Substance: CARBOPLATIN
     Dosage: BASELINE
     Route: 065
     Dates: start: 20201112
  10. PEMETREXED. [Suspect]
     Active Substance: PEMETREXED
     Indication: LUNG ADENOCARCINOMA
     Dosage: BASELINE
     Route: 065
     Dates: start: 20200909
  11. PEMETREXED. [Suspect]
     Active Substance: PEMETREXED
     Dosage: BASELINE
     Route: 065
     Dates: start: 20201001
  12. PEMETREXED. [Suspect]
     Active Substance: PEMETREXED
     Dosage: BASELINE
     Route: 065
     Dates: start: 20201112
  13. PEMBROLIZUMAB. [Suspect]
     Active Substance: PEMBROLIZUMAB
     Dosage: BASELINE
     Route: 065
     Dates: start: 20201001
  14. PEMBROLIZUMAB. [Suspect]
     Active Substance: PEMBROLIZUMAB
     Dosage: BASELINE
     Route: 065
     Dates: start: 20201022
  15. CARBOPLATIN. [Suspect]
     Active Substance: CARBOPLATIN
     Dosage: BASELINE
     Route: 065
     Dates: start: 20201001
  16. PEMBROLIZUMAB. [Suspect]
     Active Substance: PEMBROLIZUMAB
     Dosage: MAINTENANCE
     Route: 065
     Dates: start: 20201228

REACTIONS (3)
  - Off label use [Unknown]
  - Hypothyroidism [Unknown]
  - Hepatotoxicity [Unknown]

NARRATIVE: CASE EVENT DATE: 20201001
